FAERS Safety Report 15948549 (Version 1)
Quarter: 2019Q1

REPORT INFORMATION
  Report Type: Spontaneous
  Country: ES (occurrence: ES)
  Receive Date: 20190212
  Receipt Date: 20190212
  Transmission Date: 20190417
  Serious: Yes (Hospitalization)
  Sender: FDA-Public Use
  Company Number: ES-ACCORD-106853

PATIENT
  Age: 35 Year
  Sex: Male

DRUGS (6)
  1. ADIRO [Concomitant]
     Active Substance: ASPIRIN
     Dosage: (0-1-0) 100 MG GASTRO-RESISTANT TABLETS EFG, 30 TABLETS
     Route: 048
  2. CARVEDILOL (2431A) [Concomitant]
     Active Substance: CARVEDILOL
     Dosage: 6,25 MG DIA
     Route: 048
  3. PREDNISONA (886A) [Concomitant]
     Active Substance: PREDNISONE
     Dosage: 5MG DIA
     Route: 048
  4. CARDURAN [Concomitant]
     Active Substance: DOXAZOSIN MESYLATE
     Dosage: 4 MG DIA
     Route: 048
  5. MYFORTIC [Concomitant]
     Active Substance: MYCOPHENOLATE SODIUM
     Dosage: 360 MG GASTRO-RESISTANT TABLETS, 50 TABLETS
     Route: 048
     Dates: start: 20160617
  6. TACROLIMUS. [Suspect]
     Active Substance: TACROLIMUS
     Indication: RENAL TRANSPLANT
     Dosage: 10 MG DAY
     Route: 048
     Dates: start: 20150630, end: 20170915

REACTIONS (1)
  - Thrombotic microangiopathy [Recovered/Resolved]

NARRATIVE: CASE EVENT DATE: 20170915
